FAERS Safety Report 20193051 (Version 1)
Quarter: 2021Q4

REPORT INFORMATION
  Report Type: Spontaneous
  Country: US (occurrence: None)
  Receive Date: 20211215
  Receipt Date: 20211215
  Transmission Date: 20220303
  Serious: Yes (Hospitalization)
  Sender: FDA-Public Use
  Company Number: None

PATIENT
  Age: 62 Year
  Sex: Female

DRUGS (10)
  1. EVEROLIMUS [Suspect]
     Active Substance: EVEROLIMUS
     Indication: Breast cancer female
     Dosage: FREQUENCY : DAILY;?
     Route: 048
     Dates: start: 20201201
  2. ANASTROZOLE TAB [Concomitant]
  3. ATORVASTATIN [Concomitant]
     Active Substance: ATORVASTATIN
  4. CALCIUM TAB [Concomitant]
  5. EVEROLIMUS TAB [Concomitant]
  6. HYDROCHLOROT CAP [Concomitant]
  7. LOSARTAN POT TAB [Concomitant]
  8. MULTIVITAMIN TAB ADLT 50+ [Concomitant]
  9. VITAMIN C TAB [Concomitant]
  10. VITAMIN D3 TAB [Concomitant]

REACTIONS (1)
  - Product dose omission in error [None]

NARRATIVE: CASE EVENT DATE: 20211210
